FAERS Safety Report 19841285 (Version 1)
Quarter: 2021Q3

REPORT INFORMATION
  Report Type: Spontaneous
  Country: US (occurrence: US)
  Receive Date: 20210915
  Receipt Date: 20210915
  Transmission Date: 20211014
  Serious: No
  Sender: FDA-Public Use
  Company Number: US-PFIZER INC-2019097834

PATIENT
  Age: 73 Year
  Sex: Female
  Weight: 68.04 kg

DRUGS (2)
  1. ESTRING [Suspect]
     Active Substance: ESTRADIOL
     Indication: VULVOVAGINAL DRYNESS
  2. ESTRING [Suspect]
     Active Substance: ESTRADIOL
     Indication: MENOPAUSAL SYMPTOMS
     Dosage: EVERY 3 MONTHS

REACTIONS (2)
  - Product dose omission issue [Unknown]
  - Discomfort [Unknown]

NARRATIVE: CASE EVENT DATE: 2020
